FAERS Safety Report 7575358-5 (Version None)
Quarter: 2011Q2

REPORT INFORMATION
  Report Type: 
  Country: None (occurrence: None)
  Receive Date: 20110627
  Receipt Date: 20080802
  Transmission Date: 20111010
  Serious: Yes (Death, Disabling, Other)
  Sender: FDA-Public Use
  Company Number: US-BAYER-200825725NA

PATIENT
  Sex: Male
  Weight: 81.633 kg

DRUGS (33)
  1. OMNISCAN [Suspect]
     Dosage: UNK
     Route: 042
     Dates: start: 20020723
  2. NEPHROVITE [VIT C,VIT H,B5,B12,B9,B3,B6,B2,B1 HCL] [Concomitant]
     Dosage: ONE TABLET DAILY
     Route: 048
  3. FERROUS SULFATE TAB [Concomitant]
     Dosage: 150 MG ONCE DAILY
     Route: 048
  4. DEPAKOTE [Concomitant]
  5. COLCHICINE [Concomitant]
  6. GADOLINIUM IN UNSPECIFIED DRUG [Concomitant]
  7. PROHANCE [Suspect]
     Indication: NUCLEAR MAGNETIC RESONANCE IMAGING
  8. PHOSLO [Concomitant]
     Dosage: ONE TABLET THREE TIMES DAILY WITH MEALS
  9. ATENOLOL [Concomitant]
     Dosage: 25 MG TWICE DAILY
  10. GADOLINIUM IN UNSPECIFIED DRUG [Concomitant]
     Dosage: UNK
     Dates: start: 20020727
  11. MULTIHANCE [Suspect]
     Indication: NUCLEAR MAGNETIC RESONANCE IMAGING
  12. NORVASC [Concomitant]
     Dosage: 5 MG TWICE DAILY
     Route: 048
  13. AMIODARONE HCL [Concomitant]
     Dosage: 400 MG
     Route: 048
  14. MAGNEVIST [Suspect]
     Indication: NUCLEAR MAGNETIC RESONANCE IMAGING
  15. OMNISCAN [Suspect]
     Indication: NUCLEAR MAGNETIC RESONANCE IMAGING
  16. OMNISCAN [Suspect]
  17. LOPRESSOR [Concomitant]
     Dosage: 25 MG DAILY
  18. LASIX [Concomitant]
     Dosage: 80 MG ONCE DAILY ON NON- HD DAYS
     Route: 048
  19. ZOLOFT [Concomitant]
     Dosage: 50 MG DAILY
     Route: 048
  20. DILANTIN [Concomitant]
     Dosage: 200 MG TWICE A DAY
  21. GADOLINIUM IN UNSPECIFIED DRUG [Concomitant]
     Indication: VENOGRAM
     Dosage: UNK
     Dates: start: 20010628
  22. GADOLINIUM IN UNSPECIFIED DRUG [Concomitant]
     Indication: COMPUTERISED TOMOGRAM
     Dosage: UNK
     Dates: start: 20011112
  23. EPOGEN [Concomitant]
     Dosage: 8,000/10,000 UNITS THREE TIMES PER WEEK
     Route: 058
  24. REFLUDAN [Concomitant]
     Dosage: 7.5 MG WITH EACH DIALYSIS
     Route: 042
  25. COUMADIN [Concomitant]
  26. ALLOPURINOL [Concomitant]
     Dosage: 300MG DAILY
     Route: 048
  27. GADOLINIUM IN UNSPECIFIED DRUG [Concomitant]
     Indication: FISTULOGRAM
     Dosage: UNK
     Dates: start: 20010522
  28. GADOLINIUM IN UNSPECIFIED DRUG [Concomitant]
     Indication: ANGIOGRAM
     Dosage: UNK
     Route: 042
     Dates: start: 20010712
  29. GADOLINIUM IN UNSPECIFIED DRUG [Concomitant]
     Indication: NUCLEAR MAGNETIC RESONANCE IMAGING
     Dosage: UNK
     Dates: start: 20020604
  30. ZESTRIL [Concomitant]
     Dosage: 10 MG TWICE DAILY
     Route: 048
  31. OPTIMARK [Suspect]
     Indication: NUCLEAR MAGNETIC RESONANCE IMAGING
  32. PROVENTIL [Concomitant]
     Dosage: 2 PUFFS FOUR TIMES A DAY
  33. GADOLINIUM IN UNSPECIFIED DRUG [Concomitant]
     Indication: NUCLEAR MAGNETIC RESONANCE IMAGING BRAIN
     Dosage: UNK

REACTIONS (12)
  - INJURY [None]
  - FIBROSIS [None]
  - ANHEDONIA [None]
  - SKIN DISCOLOURATION [None]
  - EMOTIONAL DISTRESS [None]
  - SCAR [None]
  - SKIN TIGHTNESS [None]
  - PAIN [None]
  - SKIN INDURATION [None]
  - PEAU D'ORANGE [None]
  - NEPHROGENIC SYSTEMIC FIBROSIS [None]
  - ANXIETY [None]
